FAERS Safety Report 22113919 (Version 1)
Quarter: 2023Q1

REPORT INFORMATION
  Report Type: Spontaneous
  Country: ES (occurrence: ES)
  Receive Date: 20230320
  Receipt Date: 20230320
  Transmission Date: 20230417
  Serious: Yes (Hospitalization, Other)
  Sender: FDA-Public Use
  Company Number: ES-Eisai Medical Research-EC-2023-135551

PATIENT
  Age: 63 Year
  Sex: Male
  Weight: 89 kg

DRUGS (13)
  1. FUROSEMIDE [Suspect]
     Active Substance: FUROSEMIDE
     Indication: Diuretic therapy
     Dosage: 20 MG, QD
     Route: 048
     Dates: start: 20220810, end: 20220827
  2. EPLERENONE [Suspect]
     Active Substance: EPLERENONE
     Indication: Diuretic therapy
     Dosage: 25 MG, QD
     Route: 048
     Dates: start: 20130801, end: 20220628
  3. EPLERENONE [Suspect]
     Active Substance: EPLERENONE
     Dosage: 12.5 MG, QD
     Route: 048
     Dates: start: 20220810, end: 20220827
  4. LENVATINIB [Suspect]
     Active Substance: LENVATINIB
     Indication: Hepatocellular carcinoma
     Dosage: 12 MG, QD
     Route: 048
     Dates: start: 20220221, end: 20220316
  5. LENVATINIB [Suspect]
     Active Substance: LENVATINIB
     Dosage: 12 MG, QD
     Route: 048
     Dates: start: 20220422, end: 20220621
  6. LENVATINIB [Suspect]
     Active Substance: LENVATINIB
     Dosage: 4 MG, QD
     Route: 048
     Dates: start: 20220718, end: 2022
  7. LENVATINIB [Suspect]
     Active Substance: LENVATINIB
     Dosage: 8 MG, QD
     Route: 048
     Dates: start: 20220810, end: 20220901
  8. NORFLOXACIN [Concomitant]
     Active Substance: NORFLOXACIN
     Indication: Prophylaxis
     Dosage: 400 MG, QD
     Route: 048
     Dates: start: 20130401
  9. LEVOTHYROXINE [Concomitant]
     Active Substance: LEVOTHYROXINE
     Indication: Hypothyroidism
     Dosage: 25 UG, QD
     Route: 048
     Dates: start: 20220523, end: 20220619
  10. LEVOTHYROXINE [Concomitant]
     Active Substance: LEVOTHYROXINE
     Dosage: 25 UG, QD
     Route: 048
     Dates: start: 20220810
  11. TENOFOVIR [Concomitant]
     Active Substance: TENOFOVIR
     Indication: Hepatitis B
     Dosage: 300 MG, QD
     Route: 048
     Dates: start: 20120125
  12. OMEPRAZOLE [Concomitant]
     Active Substance: OMEPRAZOLE
     Indication: Prophylaxis
     Dosage: 20 MG, QD
     Route: 048
     Dates: start: 20081008
  13. RIFAXIMIN [Concomitant]
     Active Substance: RIFAXIMIN
     Indication: Prophylaxis
     Dosage: 1200 MG, QD
     Route: 048
     Dates: start: 20100512

REACTIONS (2)
  - Hepatic encephalopathy [Recovered/Resolved]
  - Acute kidney injury [Recovered/Resolved]

NARRATIVE: CASE EVENT DATE: 20220804
